FAERS Safety Report 16580429 (Version 3)
Quarter: 2020Q2

REPORT INFORMATION
  Report Type: Report from Study
  Country: BR (occurrence: BR)
  Receive Date: 20190716
  Receipt Date: 20200519
  Transmission Date: 20200713
  Serious: Yes (Other)
  Sender: FDA-Public Use
  Company Number: PHHY2018BR111316

PATIENT
  Age: 56 Year
  Sex: Male
  Weight: 64 kg

DRUGS (3)
  1. COSENTYX [Suspect]
     Active Substance: SECUKINUMAB
     Dosage: UNK
     Route: 065
     Dates: start: 20190822
  2. COSENTYX [Suspect]
     Active Substance: SECUKINUMAB
     Dosage: UNK, QMO
     Route: 058
  3. COSENTYX [Suspect]
     Active Substance: SECUKINUMAB
     Indication: ANKYLOSING SPONDYLITIS
     Dosage: 150 MG, QW
     Route: 058
     Dates: start: 20180222

REACTIONS (16)
  - Diarrhoea [Recovered/Resolved]
  - Musculoskeletal stiffness [Unknown]
  - Drug ineffective [Not Recovered/Not Resolved]
  - Gastrointestinal disorder [Recovering/Resolving]
  - Malaise [Not Recovered/Not Resolved]
  - Breath odour [Recovering/Resolving]
  - Product preparation error [Not Recovered/Not Resolved]
  - Axillary pain [Recovering/Resolving]
  - Inappropriate schedule of product administration [Not Recovered/Not Resolved]
  - Diarrhoea [Not Recovered/Not Resolved]
  - Abdominal pain [Recovered/Resolved]
  - Pain in extremity [Not Recovered/Not Resolved]
  - General physical health deterioration [Unknown]
  - Eructation [Unknown]
  - Inflammation [Recovering/Resolving]
  - Musculoskeletal pain [Recovering/Resolving]

NARRATIVE: CASE EVENT DATE: 20180822
